FAERS Safety Report 5893847-6 (Version None)
Quarter: 2008Q3

REPORT INFORMATION
  Report Type: 
  Country: None (occurrence: None)
  Receive Date: 20080923
  Receipt Date: 20071102
  Transmission Date: 20090109
  Serious: No
  Sender: FDA-Public Use
  Company Number: US-ASTRAZENECA-2007UW25563

PATIENT
  Age: 47 Year
  Sex: Female
  Weight: 99.8 kg

DRUGS (17)
  1. SEROQUEL [Suspect]
     Indication: SLEEP DISORDER
     Route: 048
     Dates: end: 20070101
  2. SEROQUEL [Suspect]
     Indication: SLEEP APNOEA SYNDROME
     Route: 048
     Dates: end: 20070101
  3. SEROQUEL [Suspect]
     Route: 048
  4. SEROQUEL [Suspect]
     Route: 048
  5. ZOLOFT [Concomitant]
  6. BUSPAR [Concomitant]
  7. KLONOPIN [Concomitant]
  8. METFORMIN HCL [Concomitant]
  9. INSULIN [Concomitant]
  10. LAMICTAL [Concomitant]
  11. SIMVASTATIN [Concomitant]
  12. THYROID REPLACEMENT [Concomitant]
  13. OMEPRAZOLE [Concomitant]
  14. FLEXERIL [Concomitant]
  15. LEVBID [Concomitant]
  16. TOPAMAX [Concomitant]
     Indication: MIGRAINE PROPHYLAXIS
  17. DIOVAN [Concomitant]

REACTIONS (3)
  - FOOT OPERATION [None]
  - INCREASED APPETITE [None]
  - WEIGHT INCREASED [None]
